FAERS Safety Report 14331874 (Version 3)
Quarter: 2022Q4

REPORT INFORMATION
  Report Type: Spontaneous
  Country: PL (occurrence: PL)
  Receive Date: 20171228
  Receipt Date: 20221019
  Transmission Date: 20230113
  Serious: Yes (Hospitalization, Other)
  Sender: FDA-Public Use
  Company Number: PL-EMA-DD-20171215-NEGIEVPROD-105414

PATIENT

DRUGS (24)
  1. VINORELBINE [Suspect]
     Active Substance: VINORELBINE TARTRATE
     Indication: Hodgkin^s disease recurrent
     Dosage: UNK
     Route: 065
     Dates: start: 20151201
  2. VINORELBINE [Suspect]
     Active Substance: VINORELBINE TARTRATE
     Indication: Hodgkin^s disease
  3. VINORELBINE [Suspect]
     Active Substance: VINORELBINE TARTRATE
     Indication: Off label use
  4. BENDAMUSTINE [Suspect]
     Active Substance: BENDAMUSTINE
     Indication: Hodgkin^s disease recurrent
     Dosage: 4 COURSES OF BB REGIMEN
     Route: 065
     Dates: start: 20160101, end: 201701
  5. BENDAMUSTINE [Suspect]
     Active Substance: BENDAMUSTINE
     Indication: Hodgkin^s disease
  6. IFOSFAMIDE [Suspect]
     Active Substance: IFOSFAMIDE
     Indication: Hodgkin^s disease recurrent
     Dosage: 4 COURSES OF IGEV REGIMEN
     Route: 065
     Dates: start: 201512
  7. CARBOPLATIN [Suspect]
     Active Substance: CARBOPLATIN
     Indication: Hodgkin^s disease recurrent
     Dosage: 3 COURSES OF ICE REGIMEN
     Route: 065
     Dates: start: 20150101
  8. CARBOPLATIN [Suspect]
     Active Substance: CARBOPLATIN
     Indication: Hodgkin^s disease
  9. DACARBAZINE [Suspect]
     Active Substance: DACARBAZINE
     Indication: Hodgkin^s disease
     Dosage: 4 COURSES ACCORDING TO ABVD
     Route: 065
     Dates: start: 20121001, end: 201308
  10. DACARBAZINE [Suspect]
     Active Substance: DACARBAZINE
     Indication: Hodgkin^s disease
  11. GEMCITABINE [Suspect]
     Active Substance: GEMCITABINE
     Indication: Hodgkin^s disease recurrent
     Dosage: 4 COURSES OF IGEV REGIMEN
     Route: 065
     Dates: start: 20151201
  12. GEMCITABINE [Suspect]
     Active Substance: GEMCITABINE
     Indication: Hodgkin^s disease
  13. BLEOMYCIN [Suspect]
     Active Substance: BLEOMYCIN SULFATE
     Indication: Hodgkin^s disease
     Dosage: 4 COURSES ACCORDING TO ABVD
     Route: 065
     Dates: start: 20121001, end: 201308
  14. ETOPOSIDE [Suspect]
     Active Substance: ETOPOSIDE
     Indication: Hodgkin^s disease recurrent
     Dosage: 3 COURSES OF ICE REGIMEN
     Route: 065
     Dates: start: 20150101
  15. ETOPOSIDE [Suspect]
     Active Substance: ETOPOSIDE
     Indication: Hodgkin^s disease
  16. DOXORUBICIN [Suspect]
     Active Substance: DOXORUBICIN
     Indication: Hodgkin^s disease
     Dosage: 4 COURSES ACCORDING TO ABVD
     Route: 065
     Dates: start: 20121001, end: 201308
  17. VINBLASTINE [Suspect]
     Active Substance: VINBLASTINE
     Indication: Hodgkin^s disease
     Dosage: 4 COURSES ACCORDING TO ABVD
     Route: 065
     Dates: start: 20121001, end: 201308
  18. BRENTUXIMAB [Suspect]
     Active Substance: BRENTUXIMAB
     Indication: Hodgkin^s disease recurrent
     Dosage: 4 CYCLES - BB SCHEME
     Route: 065
     Dates: start: 20160101, end: 201701
  19. BRENTUXIMAB [Suspect]
     Active Substance: BRENTUXIMAB
     Indication: Hodgkin^s disease
  20. IFOSFAMIDE [Suspect]
     Active Substance: IFOSFAMIDE
     Indication: Hodgkin^s disease recurrent
     Dosage: UNK
     Route: 065
     Dates: start: 201512
  21. IFOSFAMIDE [Suspect]
     Active Substance: IFOSFAMIDE
     Indication: Hodgkin^s disease
  22. CEFTAZIDIME [Concomitant]
     Active Substance: CEFTAZIDIME
     Indication: Pneumonia
     Dosage: 2 G TWICE A DAY
     Route: 065
     Dates: start: 20170406
  23. LACTOBACILLUS ACIDOPHILUS [Concomitant]
     Active Substance: LACTOBACILLUS ACIDOPHILUS
     Indication: Product used for unknown indication
     Dosage: 3 DF (3 X 1 CAPS)
     Route: 065
     Dates: start: 20170401
  24. AMIKACIN [Concomitant]
     Active Substance: AMIKACIN
     Indication: Pneumonia
     Dosage: 1 G, QD (1/DAY)
     Route: 065
     Dates: start: 20170406

REACTIONS (12)
  - Demyelinating polyneuropathy [Recovering/Resolving]
  - Guillain-Barre syndrome [Recovering/Resolving]
  - Guillain-Barre syndrome [Unknown]
  - Urinary retention [Unknown]
  - Hypotonia [Unknown]
  - Quadriplegia [Recovering/Resolving]
  - Areflexia [Unknown]
  - Hypoaesthesia [Unknown]
  - Peripheral nerve injury [Unknown]
  - Drug ineffective for unapproved indication [Unknown]
  - Off label use [Unknown]
  - Product use in unapproved indication [Unknown]

NARRATIVE: CASE EVENT DATE: 20170101
